FAERS Safety Report 7779501-4 (Version None)
Quarter: 2011Q3

REPORT INFORMATION
  Report Type: 
  Country: None (occurrence: None)
  Receive Date: 20110927
  Receipt Date: 20110922
  Transmission Date: 20111222
  Serious: No
  Sender: FDA-Public Use
  Company Number: US-BIOGENIDEC-2011BI036596

PATIENT
  Age: 44 Year
  Sex: Male

DRUGS (3)
  1. AVONEX [Concomitant]
     Indication: MULTIPLE SCLEROSIS
     Route: 030
     Dates: start: 19981201
  2. TYSABRI [Suspect]
     Indication: MULTIPLE SCLEROSIS
     Route: 042
     Dates: start: 20100318, end: 20110805
  3. TYSABRI [Suspect]
     Route: 042
     Dates: start: 20090612, end: 20090612

REACTIONS (4)
  - WEIGHT DECREASED [None]
  - DYSARTHRIA [None]
  - GAIT DISTURBANCE [None]
  - COGNITIVE DISORDER [None]
